FAERS Safety Report 25301954 (Version 1)
Quarter: 2025Q2

REPORT INFORMATION
  Report Type: Spontaneous
  Country: US (occurrence: None)
  Receive Date: 20250512
  Receipt Date: 20250512
  Transmission Date: 20250716
  Serious: Yes (Life-Threatening, Hospitalization)
  Sender: FDA-CTU
  Company Number: None

PATIENT
  Age: 78 Year
  Sex: Female
  Weight: 60 kg

DRUGS (1)
  1. TAVNEOS [Suspect]
     Active Substance: AVACOPAN
     Indication: Anti-neutrophil cytoplasmic antibody positive vasculitis
     Dosage: 30 MG TWICE A DAY ORAL ?
     Route: 048
     Dates: start: 20250208, end: 20250305

REACTIONS (2)
  - Hepatitis cholestatic [None]
  - Therapy cessation [None]

NARRATIVE: CASE EVENT DATE: 20250305
